FAERS Safety Report 5823445-1 (Version None)
Quarter: 2008Q3

REPORT INFORMATION
  Report Type: 
  Country: None (occurrence: None)
  Receive Date: 20080725
  Receipt Date: 20080722
  Transmission Date: 20090109
  Serious: Yes (Other)
  Sender: FDA-Public Use
  Company Number: US-ABBOTT-08P-163-0465276-00

PATIENT
  Sex: Female
  Weight: 81.266 kg

DRUGS (10)
  1. HUMIRA [Suspect]
     Indication: RHEUMATOID ARTHRITIS
     Route: 050
     Dates: start: 20080430, end: 20080521
  2. VITAMIN TAB [Concomitant]
     Indication: DRUG USE FOR UNKNOWN INDICATION
     Route: 048
     Dates: start: 20080608, end: 20080716
  3. FLAXSEED EXTRACT [Concomitant]
     Indication: SUPPLEMENTATION THERAPY
     Route: 048
     Dates: start: 20080531, end: 20080608
  4. CAFFEINE [Concomitant]
     Indication: DRUG USE FOR UNKNOWN INDICATION
     Dosage: 1 SERVING THREE TIMES PER WEEK
     Route: 048
     Dates: start: 20080430, end: 20080526
  5. TEA [Concomitant]
     Indication: DRUG USE FOR UNKNOWN INDICATION
     Dosage: 1.25 SERVING PER WEEK
     Route: 048
     Dates: start: 20080430, end: 20080526
  6. COFFEE [Concomitant]
     Indication: DRUG USE FOR UNKNOWN INDICATION
     Dosage: 1 SERVING TOTAL
     Route: 048
     Dates: start: 20080430, end: 20080526
  7. LEVOTHYROXINE SODIUM [Concomitant]
     Indication: HYPOTHYROIDISM
     Route: 048
     Dates: start: 20080430, end: 20080604
  8. LEVOTHYROXINE SODIUM [Concomitant]
     Route: 048
     Dates: start: 20080605, end: 20080716
  9. ACETAMINOPHEN [Concomitant]
     Indication: HEADACHE
     Route: 048
     Dates: start: 20080611, end: 20080620
  10. TUMS [Concomitant]
     Indication: DYSPEPSIA
     Dosage: 1 PILL 3.5 TIMES PER WEEK
     Route: 048
     Dates: start: 20080617, end: 20080701

REACTIONS (1)
  - ABORTION SPONTANEOUS [None]
